FAERS Safety Report 9030449 (Version 2)
Quarter: 2013Q1

REPORT INFORMATION
  Report Type: Report from Study
  Country: IT (occurrence: IT)
  Receive Date: 20130122
  Receipt Date: 20130125
  Transmission Date: 20140127
  Serious: Yes (Life-Threatening, Hospitalization)
  Sender: FDA-Public Use
  Company Number: IT-ROCHE-1110114

PATIENT
  Age: 63 Year
  Sex: Male
  Weight: 66 kg

DRUGS (11)
  1. GDC-0941 [Suspect]
     Indication: NON-SMALL CELL LUNG CANCER
     Dosage: DATE OF MOST REENT DOSE PRIOR TO EVENT: 27/AUG/2012
     Route: 048
     Dates: start: 20120814
  2. BEVACIZUMAB [Suspect]
     Indication: NON-SMALL CELL LUNG CANCER
     Dosage: DATE OF MOST RECENT DOSE PRIOR TO THE EVENT: 14/AUG/2012
     Route: 042
     Dates: start: 20120814
  3. PACLITAXEL [Suspect]
     Indication: NON-SMALL CELL LUNG CANCER
     Dosage: DATE OF MOST RECENT DOSE PRIOR TO THE EVENT: 14/AUG/2012
     Route: 042
     Dates: start: 20120814
  4. CARBOPLATIN [Suspect]
     Indication: NON-SMALL CELL LUNG CANCER
     Dosage: DATE OF MOST RECENT DOSE PRIOR TO THE EVENT: 14/AUG/2012
     Route: 042
     Dates: start: 20120814
  5. TARGIN [Concomitant]
     Indication: CHEST PAIN
     Route: 048
     Dates: start: 20120712, end: 20120813
  6. TARGIN [Concomitant]
     Route: 048
     Dates: start: 20120813, end: 20120924
  7. PARACETAMOL [Concomitant]
     Indication: PAIN IN EXTREMITY
     Route: 048
     Dates: start: 20120813, end: 20120824
  8. ABSTRAL [Concomitant]
     Indication: PAIN IN EXTREMITY
     Route: 048
     Dates: start: 20120813, end: 20120824
  9. DELTACORTENE [Concomitant]
     Indication: ASTHENIA
     Route: 048
     Dates: start: 20120821, end: 20120924
  10. PARIET [Concomitant]
     Indication: GASTRIC ULCER
     Route: 048
     Dates: start: 20120712
  11. PARIET [Concomitant]
     Route: 048
     Dates: start: 20120723, end: 20121001

REACTIONS (1)
  - Diverticular perforation [Recovered/Resolved]
